FAERS Safety Report 8323199-3 (Version None)
Quarter: 2012Q2

REPORT INFORMATION
  Report Type: 
  Country: None (occurrence: None)
  Receive Date: 20120430
  Receipt Date: 20120420
  Transmission Date: 20120825
  Serious: Yes (Other)
  Sender: FDA-Public Use
  Company Number: PHHY2012JP032601

PATIENT
  Age: 62 Year
  Sex: Male

DRUGS (2)
  1. CYCLOSPORINE [Suspect]
     Indication: SYSTEMIC LUPUS ERYTHEMATOSUS
     Dosage: 3 MG/KG, DAILY
  2. PREDNISOLONE [Concomitant]
     Indication: SYSTEMIC LUPUS ERYTHEMATOSUS
     Dosage: 20 MG, DAILY

REACTIONS (12)
  - TRICHOPHYTIC GRANULOMA [None]
  - DERMATITIS EXFOLIATIVE [None]
  - SUBCUTANEOUS NODULE [None]
  - BODY TINEA [None]
  - PURULENT DISCHARGE [None]
  - PITYRIASIS [None]
  - SUBCUTANEOUS ABSCESS [None]
  - NAIL DISCOLOURATION [None]
  - PARAESTHESIA [None]
  - SKIN EXFOLIATION [None]
  - ONYCHOMYCOSIS [None]
  - NAIL DISORDER [None]
